FAERS Safety Report 4403055-3 (Version None)
Quarter: 2004Q3

REPORT INFORMATION
  Report Type: 
  Country: None (occurrence: None)
  Receive Date: 20040721
  Receipt Date: 20040206
  Transmission Date: 20050211
  Serious: No
  Sender: FDA-Public Use
  Company Number: US-GLAXOSMITHKLINE-A0497107A

PATIENT
  Sex: Female

DRUGS (8)
  1. IMITREX [Suspect]
     Indication: MIGRAINE
     Dosage: 50MG PER DAY
     Route: 048
  2. ALLEGRA [Concomitant]
  3. NEXIUM [Concomitant]
  4. EVISTA [Concomitant]
  5. CHLORPROMAZINE [Concomitant]
  6. FLOVENT [Concomitant]
  7. BECONASE [Concomitant]
  8. UNKNOWN MEDICATION [Concomitant]

REACTIONS (1)
  - DRUG INEFFECTIVE [None]
